FAERS Safety Report 17581188 (Version 3)
Quarter: 2020Q2

REPORT INFORMATION
  Report Type: Spontaneous
  Country: HU (occurrence: HU)
  Receive Date: 20200325
  Receipt Date: 20200528
  Transmission Date: 20200713
  Serious: Yes (Other)
  Sender: FDA-Public Use
  Company Number: NVSC2020HU083559

PATIENT
  Age: 63 Year
  Sex: Female

DRUGS (8)
  1. LETROZOLE. [Suspect]
     Active Substance: LETROZOLE
     Indication: BREAST CANCER METASTATIC
     Route: 065
     Dates: start: 2015
  2. PALBOCICLIB [Suspect]
     Active Substance: PALBOCICLIB
     Dosage: 125 MG/DAY (FOR 21 DAYS, THEN A 1 WEEK BREAK IN A 28-DAYS CYCLE)
     Route: 065
  3. LETROZOLE. [Suspect]
     Active Substance: LETROZOLE
     Dosage: 2.5 MG, QD
     Route: 065
  4. PALBOCICLIB [Suspect]
     Active Substance: PALBOCICLIB
     Indication: PRODUCT USED FOR UNKNOWN INDICATION
     Dosage: 125 MG/DAY (FOR 21 DAYS, THEN A 1 WEEK BREAK IN A 28-DAYS CYCLE), 1 DF CYCLICAL
     Route: 065
  5. CALCIUM [Concomitant]
     Active Substance: CALCIUM
     Indication: BREAST CANCER METASTATIC
     Dosage: 1000 MG
     Route: 048
  6. VITAMIN D3 [Concomitant]
     Active Substance: CHOLECALCIFEROL
     Indication: PRODUCT USED FOR UNKNOWN INDICATION
     Dosage: 1000 IU, QD
     Route: 065
  7. LETROZOLE. [Suspect]
     Active Substance: LETROZOLE
     Dosage: 2.5 MG, QD (FOR 21 DAYS, THEN A 1 WEEK BREAK IN A 28-DAYS CYCLE)
     Route: 065
  8. ZOLEDRONIC ACID [Concomitant]
     Active Substance: ZOLEDRONIC ACID
     Indication: PRODUCT USED FOR UNKNOWN INDICATION
     Dosage: EVERY 28 DAYS, THEN AFTER 6 MONTHS WITH A 3 MONTHS FREQUENCY
     Route: 042

REACTIONS (19)
  - Breast cancer metastatic [Unknown]
  - Atelectasis [Unknown]
  - Breast neoplasm [Unknown]
  - Dyspnoea [Recovered/Resolved]
  - Pre-existing condition improved [Unknown]
  - Invasive lobular breast carcinoma [Unknown]
  - Therapeutic response unexpected [Unknown]
  - Metastases to liver [Unknown]
  - Tissue infiltration [Unknown]
  - Supraventricular tachycardia [Unknown]
  - Hydrothorax [Recovering/Resolving]
  - Malignant neoplasm progression [Unknown]
  - Spinal pain [Recovered/Resolved]
  - Metastases to breast [Unknown]
  - Metastases to bone [Unknown]
  - Dyspnoea exertional [Unknown]
  - Eastern Cooperative Oncology Group performance status worsened [Recovered/Resolved]
  - Neoplasm progression [Unknown]
  - Metastases to chest wall [Unknown]

NARRATIVE: CASE EVENT DATE: 201712
